FAERS Safety Report 5797630-1 (Version None)
Quarter: 2008Q2

REPORT INFORMATION
  Report Type: 
  Country: None (occurrence: None)
  Receive Date: 20080618
  Receipt Date: 20070816
  Transmission Date: 20081010
  Serious: Yes (Other)
  Sender: FDA-Public Use
  Company Number: 200714490US

PATIENT
  Age: 52 Year
  Sex: Male

DRUGS (4)
  1. LANTUS [Suspect]
     Indication: DIABETES MELLITUS
     Dosage: 35 U QAM
     Dates: start: 20070615, end: 20070601
  2. NOVOLIN R [Suspect]
     Dosage: 6-7 U AC
  3. NOVOLIN R [Suspect]
     Dosage: 3-4 U BID
  4. OTHER MEDICATIONS NOS [Concomitant]

REACTIONS (2)
  - BLOOD GLUCOSE INCREASED [None]
  - HYPOGLYCAEMIA [None]
